FAERS Safety Report 15932483 (Version 1)
Quarter: 2019Q1

REPORT INFORMATION
  Report Type: Report from Study
  Country: US (occurrence: US)
  Receive Date: 20190207
  Receipt Date: 20190207
  Transmission Date: 20190417
  Serious: Yes (Hospitalization)
  Sender: FDA-Public Use
  Company Number: US-ROCHE-2257326

PATIENT
  Age: 59 Year
  Sex: Female
  Weight: 61.4 kg

DRUGS (2)
  1. VEMURAFENIB. [Suspect]
     Active Substance: VEMURAFENIB
     Indication: CRANIOPHARYNGIOMA
     Dosage: LAST DOSE OF VEMURAFENIB ON 01/OCT/2018 BEFORE DYSPNEA. ?LAST DOSE OF COBIMETINIB ON 21/AUG/2018 BEF
     Route: 048
  2. COBIMETINIB. [Suspect]
     Active Substance: COBIMETINIB
     Indication: CRANIOPHARYNGIOMA
     Dosage: LAST DOSE OF COBIMETINIB ON 24/SEP/2018 BEFORE DYSPNEA,?LAST DOSE OF COBIMETINIB ON 21/AUG/2018 BEFO
     Route: 048

REACTIONS (2)
  - Dehydration [Recovering/Resolving]
  - Dyspnoea [Recovered/Resolved with Sequelae]

NARRATIVE: CASE EVENT DATE: 20180822
